FAERS Safety Report 9080470 (Version 1)
Quarter: 2013Q1

REPORT INFORMATION
  Report Type: Spontaneous
  Country: GB (occurrence: GB)
  Receive Date: 20130131
  Receipt Date: 20130131
  Transmission Date: 20140127
  Serious: Yes (Other)
  Sender: FDA-Public Use
  Company Number: GB-009507513-1301GBR012259

PATIENT
  Age: 48 Year
  Sex: Male

DRUGS (3)
  1. RIBAVIRIN [Suspect]
     Indication: HEPATITIS C
     Dosage: UNK, BID
     Route: 048
     Dates: start: 20120919
  2. PEGINTERFERON ALFA-2B [Suspect]
     Indication: HEPATITIS C
     Dosage: UNK, QW
     Route: 058
     Dates: start: 20120919
  3. TELAPREVIR [Suspect]
     Indication: HEPATITIS C
     Dosage: 750 MG, TID
     Route: 048
     Dates: start: 20120919

REACTIONS (11)
  - Fatigue [Not Recovered/Not Resolved]
  - Rash [Not Recovered/Not Resolved]
  - Haemorrhoids [Not Recovered/Not Resolved]
  - Nausea [Not Recovered/Not Resolved]
  - Mood swings [Not Recovered/Not Resolved]
  - Depressed mood [Not Recovered/Not Resolved]
  - Lethargy [Unknown]
  - Decreased interest [Not Recovered/Not Resolved]
  - Depression [Not Recovered/Not Resolved]
  - Malaise [Unknown]
  - Headache [Unknown]
